FAERS Safety Report 7720396-2 (Version None)
Quarter: 2011Q3

REPORT INFORMATION
  Report Type: 
  Country: None (occurrence: None)
  Receive Date: 20110830
  Receipt Date: 20110830
  Transmission Date: 20111222
  Serious: No
  Sender: FDA-Public Use
  Company Number: None

PATIENT
  Age: 50 Year
  Sex: Male

DRUGS (2)
  1. ETRAVIRINE [Suspect]
     Dates: start: 20100524, end: 20100803
  2. DARUNAVIR HYDRATE [Suspect]
     Dates: start: 20100524, end: 20100803

REACTIONS (4)
  - HYPERSENSITIVITY [None]
  - RASH PRURITIC [None]
  - HEPATIC CIRRHOSIS [None]
  - LIVER DISORDER [None]
